FAERS Safety Report 7655430-1 (Version None)
Quarter: 2011Q3

REPORT INFORMATION
  Report Type: 
  Country: None (occurrence: None)
  Receive Date: 20110804
  Receipt Date: 20110802
  Transmission Date: 20111222
  Serious: Yes (Other)
  Sender: FDA-Public Use
  Company Number: BE-SANOFI-AVENTIS-2011SA049551

PATIENT
  Age: 53 Year
  Sex: Female

DRUGS (4)
  1. RAMIPRIL [Concomitant]
     Route: 065
  2. ENOXAPARIN SODIUM [Suspect]
     Indication: DEEP VEIN THROMBOSIS
     Route: 065
     Dates: start: 20110726
  3. BISOPROLOL FUMARATE [Concomitant]
     Route: 065
  4. SINTROM [Concomitant]
     Indication: DEEP VEIN THROMBOSIS
     Route: 065
     Dates: start: 20110726

REACTIONS (2)
  - HEPATOCELLULAR INJURY [None]
  - HEPATIC ENZYME INCREASED [None]
